FAERS Safety Report 9135573 (Version 2)
Quarter: 2013Q2

REPORT INFORMATION
  Report Type: Spontaneous
  Country: JP (occurrence: JP)
  Receive Date: 20130304
  Receipt Date: 20130418
  Transmission Date: 20140414
  Serious: Yes (Life-Threatening, Hospitalization)
  Sender: FDA-Public Use
  Company Number: PHHY2013JP019732

PATIENT
  Age: 48 Year
  Sex: Male

DRUGS (4)
  1. CARBOPLATIN SANDOZ [Suspect]
     Indication: METASTASES TO LIVER
     Dosage: 540 MG, UNK
     Route: 042
     Dates: start: 20120531, end: 201207
  2. ALIMTA [Suspect]
     Indication: METASTASES TO LIVER
     Dosage: 925 MG, UNK
     Route: 042
     Dates: start: 20120531
  3. AVASTIN [Suspect]
     Indication: METASTASES TO LIVER
     Dosage: 1000 MG, UNK
     Route: 042
     Dates: start: 20120531
  4. GEFITINIB [Suspect]
     Indication: METASTASES TO LIVER
     Dosage: 250 MG, PER DAY

REACTIONS (7)
  - Oesophageal varices haemorrhage [Not Recovered/Not Resolved]
  - Faeces discoloured [Not Recovered/Not Resolved]
  - Portal hypertension [Unknown]
  - Hypotension [Unknown]
  - Normochromic normocytic anaemia [Unknown]
  - Blood urea increased [Unknown]
  - Transaminases increased [Unknown]
